FAERS Safety Report 12880360 (Version 5)
Quarter: 2017Q1

REPORT INFORMATION
  Report Type: Spontaneous
  Country: US (occurrence: US)
  Receive Date: 20161025
  Receipt Date: 20170109
  Transmission Date: 20170428
  Serious: No
  Sender: FDA-Public Use
  Company Number: US-PFIZER INC-2016491902

PATIENT
  Age: 66 Year
  Sex: Male
  Weight: 100 kg

DRUGS (7)
  1. RAPAMUNE [Suspect]
     Active Substance: SIROLIMUS
     Dosage: UNK
  2. RAPAMUNE [Suspect]
     Active Substance: SIROLIMUS
     Dosage: 1 MG, 1X/DAY
  3. SIROLIMUS. [Suspect]
     Active Substance: SIROLIMUS
     Indication: LUNG TRANSPLANT
     Dosage: 0.5 MG, 1X/DAY
     Dates: start: 20161012
  4. SIROLIMUS. [Suspect]
     Active Substance: SIROLIMUS
     Dosage: 2 MG, DAILY
     Dates: start: 20160810, end: 20161111
  5. RAPAMUNE [Suspect]
     Active Substance: SIROLIMUS
     Indication: LUNG TRANSPLANT
     Dosage: 2 MG, 1X/DAY
     Route: 048
     Dates: start: 201607
  6. RAPAMUNE [Suspect]
     Active Substance: SIROLIMUS
     Dosage: 1.5 MG, 1X/DAY (0.5 MG IN AM, ALONG WITH 1 MG TABLET)
     Route: 048
     Dates: start: 20161019
  7. RAPAMUNE [Suspect]
     Active Substance: SIROLIMUS
     Dosage: 0.5 MG, UNK
     Dates: end: 20161111

REACTIONS (2)
  - Product use issue [Unknown]
  - Joint swelling [Not Recovered/Not Resolved]

NARRATIVE: CASE EVENT DATE: 201607
